FAERS Safety Report 19874801 (Version 1)
Quarter: 2021Q3

REPORT INFORMATION
  Report Type: Spontaneous
  Country: US (occurrence: US)
  Receive Date: 20210922
  Receipt Date: 20210922
  Transmission Date: 20211014
  Serious: No
  Sender: FDA-Public Use
  Company Number: US-AMGEN-USASP2021145286

PATIENT
  Age: 36 Year
  Sex: Male

DRUGS (3)
  1. CLOZAPINE. [Concomitant]
     Active Substance: CLOZAPINE
     Indication: PRODUCT USED FOR UNKNOWN INDICATION
     Dosage: UNK
     Route: 065
  2. OTEZLA [Suspect]
     Active Substance: APREMILAST
     Indication: PSORIATIC ARTHROPATHY
     Dosage: UNK (STARTER PACK)
     Route: 065
     Dates: start: 20210915, end: 20210917
  3. AMOXICILLIN. [Concomitant]
     Active Substance: AMOXICILLIN
     Indication: WOUND
     Dosage: UNK
     Route: 065
     Dates: start: 2021

REACTIONS (3)
  - Chest discomfort [Unknown]
  - Chest pain [Unknown]
  - Dyspnoea [Unknown]

NARRATIVE: CASE EVENT DATE: 20210916
